FAERS Safety Report 4715402-3 (Version None)
Quarter: 2005Q3

REPORT INFORMATION
  Report Type: 
  Country: None (occurrence: None)
  Receive Date: 20050714
  Receipt Date: 20050714
  Transmission Date: 20060218
  Serious: No
  Sender: FDA-Public Use
  Company Number: None

PATIENT

DRUGS (4)
  1. AMPICILLIN [Suspect]
     Dosage: INJECTABLE
  2. CEFAZOLIN [Suspect]
     Dosage: INJECTABLE
  3. NAFCILLIN SODIUM [Suspect]
     Dosage: INJECTABLE
  4. PENICILLIN G POTASSIUM [Suspect]
     Dosage: INJECTABLE

REACTIONS (1)
  - MEDICATION ERROR [None]
